FAERS Safety Report 18932022 (Version 2)
Quarter: 2021Q2

REPORT INFORMATION
  Report Type: Spontaneous
  Country: US (occurrence: US)
  Receive Date: 20210223
  Receipt Date: 20210602
  Transmission Date: 20210717
  Serious: No
  Sender: FDA-Public Use
  Company Number: US-ROCHE-2754673

PATIENT
  Sex: Male
  Weight: 46.04 kg

DRUGS (5)
  1. EVRYSDI [Suspect]
     Active Substance: RISDIPLAM
     Dosage: 0.75 MG/ML
     Route: 048
  2. EVRYSDI [Suspect]
     Active Substance: RISDIPLAM
     Indication: SPINAL MUSCULAR ATROPHY
     Dosage: 5 MG
     Route: 048
  3. CETIRIZINE HYDROCHLORIDE. [Concomitant]
     Active Substance: CETIRIZINE HYDROCHLORIDE
     Dosage: 1 MG/ML SOLUTION
  4. LACTULOSE. [Concomitant]
     Active Substance: LACTULOSE
     Dosage: 10 G/15 ML SOLUTION
     Route: 048
  5. LORAZEPAM. [Concomitant]
     Active Substance: LORAZEPAM
     Route: 048

REACTIONS (2)
  - Circumstance or information capable of leading to medication error [Unknown]
  - No adverse event [Unknown]
